FAERS Safety Report 8958180 (Version 1)
Quarter: 2012Q4

REPORT INFORMATION
  Report Type: 
  Country: ID (occurrence: ID)
  Receive Date: 20121211
  Receipt Date: 20121211
  Transmission Date: 20130627
  Serious: Yes (Death, Hospitalization)
  Sender: FDA-Public Use
  Company Number: ID-ASTRAZENECA-2012SE92064

PATIENT
  Age: 46 Year
  Sex: Male

DRUGS (7)
  1. BRILINTA [Suspect]
     Dosage: 180 mg loading dose
     Route: 048
  2. BRILINTA [Suspect]
     Route: 048
  3. ASPIRIN [Suspect]
     Route: 065
  4. BISOPROLOL [Concomitant]
  5. LIPITOR [Concomitant]
  6. TRIATEC [Concomitant]
  7. ANTIBIOTIC [Concomitant]
     Dosage: 2000 unit UFH

REACTIONS (8)
  - Dyspnoea [Fatal]
  - Thrombocytopenia [Fatal]
  - Ventricular tachycardia [Unknown]
  - Bradycardia [Unknown]
  - Sepsis [Fatal]
  - Pneumonia [Fatal]
  - Nausea [Unknown]
  - Vomiting [Unknown]
